FAERS Safety Report 23351981 (Version 1)
Quarter: 2023Q4

REPORT INFORMATION
  Report Type: Spontaneous
  Country: RO (occurrence: RO)
  Receive Date: 20231229
  Receipt Date: 20231229
  Transmission Date: 20240110
  Serious: Yes (Death, Other)
  Sender: FDA-Public Use
  Company Number: RO-SUN PHARMACEUTICAL INDUSTRIES LTD-2023R1-425788

PATIENT
  Age: 30 Year
  Sex: Female

DRUGS (3)
  1. DEXAMETHASONE [Suspect]
     Active Substance: DEXAMETHASONE
     Indication: Brain oedema
     Dosage: UNK (4 MG/ML)
     Route: 065
  2. MANNITOL [Suspect]
     Active Substance: MANNITOL
     Indication: Cerebral disorder
     Dosage: 125 MILLILITER, BID
     Route: 065
  3. LEVETIRACETAM [Concomitant]
     Active Substance: LEVETIRACETAM
     Indication: Seizure prophylaxis
     Dosage: UNK (500 MG)
     Route: 065

REACTIONS (1)
  - Disease progression [Fatal]
